FAERS Safety Report 8846546 (Version 2)
Quarter: 2012Q4

REPORT INFORMATION
  Report Type: 
  Country: US (occurrence: US)
  Receive Date: 20121017
  Receipt Date: 20121107
  Transmission Date: 20130627
  Serious: Yes (Hospitalization)
  Sender: FDA-Public Use
  Company Number: US-GLAXOSMITHKLINE-A0997709A

PATIENT
  Age: 68 Year
  Sex: Female
  Weight: 78.2 kg

DRUGS (16)
  1. ADVAIR [Suspect]
     Indication: CHRONIC OBSTRUCTIVE PULMONARY DISEASE
     Route: 055
  2. ALBUTEROL [Suspect]
     Indication: CHRONIC OBSTRUCTIVE PULMONARY DISEASE
     Route: 055
  3. SINGULAIR [Suspect]
     Indication: CHRONIC OBSTRUCTIVE PULMONARY DISEASE
     Route: 065
  4. SPIRIVA [Suspect]
     Indication: CHRONIC OBSTRUCTIVE PULMONARY DISEASE
     Route: 065
  5. PULMICORT [Suspect]
     Indication: PRODUCT USED FOR UNKNOWN INDICATION
     Route: 065
  6. NEURONTIN [Suspect]
     Indication: NERVE INJURY
     Dosage: 600MG Three times per day
     Dates: end: 2012
  7. GABAPENTIN [Suspect]
     Indication: NERVE INJURY
     Route: 065
  8. ZOVIRAX [Concomitant]
     Indication: HERPES ZOSTER
     Dates: start: 201209
  9. DILAUDID [Concomitant]
  10. DEMEROL [Concomitant]
  11. HYDROCORTISONE [Concomitant]
  12. ACYCLOVIR [Concomitant]
     Indication: HERPES ZOSTER
     Dosage: 400MG Twice per day
     Dates: start: 201209
  13. VENTILATION [Concomitant]
  14. TRIAMCINOLONE [Concomitant]
  15. LANSOPRAZOLE [Concomitant]
     Indication: GASTROOESOPHAGEAL REFLUX DISEASE
  16. NAPROXEN [Concomitant]
     Indication: OSTEOPOROSIS
     Dosage: 500MG As required

REACTIONS (9)
  - Asthma [Unknown]
  - Nervousness [Unknown]
  - Herpes zoster [Not Recovered/Not Resolved]
  - Pruritus [Not Recovered/Not Resolved]
  - Erythema [Not Recovered/Not Resolved]
  - Heart rate increased [Unknown]
  - Drug ineffective [Unknown]
  - Drug administration error [Unknown]
  - Overdose [Unknown]
